FAERS Safety Report 15895273 (Version 7)
Quarter: 2019Q4

REPORT INFORMATION
  Report Type: Spontaneous
  Country: BE (occurrence: BE)
  Receive Date: 20190131
  Receipt Date: 20191220
  Transmission Date: 20200122
  Serious: Yes (Other)
  Sender: FDA-Public Use
  Company Number: BE-MYLANLABS-2019M1008604

PATIENT
  Age: 53 Year
  Sex: Female

DRUGS (4)
  1. ESTRADIOL. [Suspect]
     Active Substance: ESTRADIOL
     Indication: TRANSGENDER HORMONAL THERAPY
  2. ESTRADIOL. [Suspect]
     Active Substance: ESTRADIOL
     Indication: GENDER DYSPHORIA
     Dosage: UNKNOWN,2 IN 1 WK  (50 ?G /24H)
     Route: 062
  3. CYPROTERONE [Suspect]
     Active Substance: CYPROTERONE
     Indication: GENDER DYSPHORIA
     Dosage: 50 MILLIGRAM, QD
     Route: 065
  4. CYPROTERONE [Suspect]
     Active Substance: CYPROTERONE
     Indication: TRANSGENDER HORMONAL THERAPY

REACTIONS (5)
  - Off label use [Unknown]
  - Condition aggravated [Recovering/Resolving]
  - Meningioma [Recovering/Resolving]
  - Magnetic resonance imaging abnormal [Recovering/Resolving]
  - Headache [Unknown]
